FAERS Safety Report 10771738 (Version 1)
Quarter: 2015Q1

REPORT INFORMATION
  Report Type: Spontaneous
  Country: US (occurrence: US)
  Receive Date: 20150206
  Receipt Date: 20150206
  Transmission Date: 20150721
  Serious: No
  Sender: FDA-Public Use
  Company Number: US-ACORDA-ACO_105570_2014

PATIENT
  Age: 54 Year
  Sex: Female

DRUGS (1)
  1. AMPYRA [Suspect]
     Active Substance: DALFAMPRIDINE
     Indication: PRODUCT USED FOR UNKNOWN INDICATION
     Dosage: 10 MG, Q 12 HRS
     Route: 048
     Dates: start: 20140807, end: 20140823

REACTIONS (6)
  - Urinary tract infection [Recovered/Resolved]
  - Gastrointestinal disorder [Unknown]
  - Bradyphrenia [Recovered/Resolved]
  - Hot flush [Unknown]
  - Drug ineffective [Unknown]
  - Back pain [Recovered/Resolved]

NARRATIVE: CASE EVENT DATE: 201408
